FAERS Safety Report 11574229 (Version 1)
Quarter: 2015Q3

REPORT INFORMATION
  Report Type: Spontaneous
  Country: US (occurrence: None)
  Receive Date: 20150928
  Receipt Date: 20150928
  Transmission Date: 20151125
  Serious: No
  Sender: FDA-Public Use
  Company Number: None

PATIENT
  Age: 75 Year
  Sex: Female

DRUGS (7)
  1. CHOLECALCIFEROL [Concomitant]
     Active Substance: CHOLECALCIFEROL
  2. INSULIN [Concomitant]
     Active Substance: INSULIN NOS
  3. ALBUTEROL. [Concomitant]
     Active Substance: ALBUTEROL
  4. LOSARTAN. [Concomitant]
     Active Substance: LOSARTAN
  5. OTEZLA [Suspect]
     Active Substance: APREMILAST
     Indication: PSORIASIS
     Route: 048
     Dates: start: 20150801, end: 20150806
  6. APREMILAST [Concomitant]
     Active Substance: APREMILAST
  7. SIMVASTATIN. [Concomitant]
     Active Substance: SIMVASTATIN

REACTIONS (4)
  - Dyspnoea [None]
  - Diarrhoea [None]
  - Headache [None]
  - Nausea [None]

NARRATIVE: CASE EVENT DATE: 20150806
